FAERS Safety Report 15506036 (Version 1)
Quarter: 2018Q4

REPORT INFORMATION
  Report Type: Spontaneous
  Country: US (occurrence: US)
  Receive Date: 20181016
  Receipt Date: 20181016
  Transmission Date: 20190205
  Serious: No
  Sender: FDA-Public Use
  Company Number: US-PFIZER INC-2018157346

PATIENT
  Age: 13 Year
  Sex: Female
  Weight: 39 kg

DRUGS (3)
  1. GENOTROPIN [Suspect]
     Active Substance: SOMATROPIN
     Indication: HORMONE REPLACEMENT THERAPY
     Dosage: 3 MG, DAILY
  2. GENOTROPIN [Suspect]
     Active Substance: SOMATROPIN
     Indication: GROWTH HORMONE DEFICIENCY
     Dosage: UNK UNK, 1X/DAY (AT NIGHT)
     Dates: start: 20170919, end: 20180921
  3. VYVANSE [Concomitant]
     Active Substance: LISDEXAMFETAMINE DIMESYLATE
     Indication: ATTENTION DEFICIT/HYPERACTIVITY DISORDER
     Dosage: 30 MG, UNK

REACTIONS (3)
  - Device issue [Unknown]
  - Product dose omission [Unknown]
  - Hyperphagia [Unknown]

NARRATIVE: CASE EVENT DATE: 20180921
